FAERS Safety Report 9406896 (Version 1)
Quarter: 2013Q3

REPORT INFORMATION
  Report Type: Report from Study
  Country: US (occurrence: US)
  Receive Date: 20130718
  Receipt Date: 20130718
  Transmission Date: 20140515
  Serious: Yes (Hospitalization, Other)
  Sender: FDA-Public Use
  Company Number: PHEH2013US015069

PATIENT
  Age: 44 Year
  Sex: Male

DRUGS (2)
  1. TOBI [Suspect]
     Indication: CYSTIC FIBROSIS
     Dosage: 300 MG, BID
     Dates: start: 20121204, end: 201303
  2. PULMOZYME [Concomitant]
     Dosage: UNK UKN, UNK

REACTIONS (3)
  - Infection [Recovering/Resolving]
  - Pulmonary function test decreased [Recovering/Resolving]
  - Renal impairment [Recovering/Resolving]
